FAERS Safety Report 4589082-4 (Version None)
Quarter: 2005Q1

REPORT INFORMATION
  Report Type: 
  Country: None (occurrence: None)
  Receive Date: 20050222
  Receipt Date: 20050202
  Transmission Date: 20050727
  Serious: Yes (Hospitalization)
  Sender: FDA-Public Use
  Company Number: CH-MERCK-0502CHE00005

PATIENT
  Age: 53 Year
  Sex: Male
  Weight: 90 kg

DRUGS (8)
  1. CANCIDAS [Suspect]
     Indication: SEPSIS
     Route: 042
     Dates: start: 20050114, end: 20050201
  2. PIPERACILLIN SODIUM AND TAZOBACTAM SODIUM [Concomitant]
     Route: 065
  3. VORICONAZOLE [Concomitant]
     Route: 065
  4. MEROPENEM [Concomitant]
     Indication: SEPSIS
     Route: 042
  5. ESOMEPRAZOLE MAGNESIUM [Concomitant]
     Route: 065
  6. ACENOCOUMAROL [Concomitant]
     Route: 048
  7. EPOETIN ALFA [Concomitant]
     Route: 042
  8. FLUCONAZOLE [Concomitant]
     Route: 065
     Dates: start: 20050101, end: 20050101

REACTIONS (2)
  - BLINDNESS [None]
  - REVERSIBLE POSTERIOR LEUKOENCEPHALOPATHY SYNDROME [None]
